FAERS Safety Report 12910107 (Version 2)
Quarter: 2016Q4

REPORT INFORMATION
  Report Type: Spontaneous
  Country: JP (occurrence: JP)
  Receive Date: 20161104
  Receipt Date: 20161123
  Transmission Date: 20170207
  Serious: Yes (Life-Threatening, Hospitalization, Other)
  Sender: FDA-Public Use
  Company Number: PHHY2016JP150142

PATIENT
  Age: 52 Year
  Sex: Male

DRUGS (1)
  1. RITALINE [Suspect]
     Active Substance: METHYLPHENIDATE HYDROCHLORIDE
     Indication: PRODUCT USED FOR UNKNOWN INDICATION
     Dosage: UNK
     Route: 065

REACTIONS (8)
  - Staphylococcal infection [Unknown]
  - Pyrexia [Unknown]
  - Induration [Unknown]
  - Septic shock [Unknown]
  - Fatigue [Unknown]
  - Restlessness [Unknown]
  - Wrong technique in product usage process [Unknown]
  - Peripheral swelling [Unknown]
